FAERS Safety Report 24028334 (Version 1)
Quarter: 2024Q2

REPORT INFORMATION
  Report Type: Other
  Country: GB (occurrence: GB)
  Receive Date: 20240628
  Receipt Date: 20240628
  Transmission Date: 20240715
  Serious: Yes (Other)
  Sender: FDA-Public Use
  Company Number: None

PATIENT

DRUGS (2)
  1. SILDENAFIL [Suspect]
     Active Substance: SILDENAFIL
     Indication: Erectile dysfunction
     Dosage: PRN (DOSE INCREASED)
     Route: 065
  2. SILDENAFIL [Suspect]
     Active Substance: SILDENAFIL
     Dosage: PRN
     Route: 065

REACTIONS (5)
  - Gastric haemorrhage [Recovered/Resolved]
  - Vasodilatation [Recovered/Resolved]
  - Faeces discoloured [Recovered/Resolved]
  - Haemoglobin decreased [Recovered/Resolved]
  - Gastritis [Recovered/Resolved]

NARRATIVE: CASE EVENT DATE: 20230905
